FAERS Safety Report 20236357 (Version 2)
Quarter: 2022Q1

REPORT INFORMATION
  Report Type: Spontaneous
  Country: US (occurrence: US)
  Receive Date: 20211228
  Receipt Date: 20220117
  Transmission Date: 20220423
  Serious: No
  Sender: FDA-Public Use
  Company Number: US-MICRO LABS LIMITED-ML2021-03984

PATIENT
  Age: 80 Year
  Sex: Female

DRUGS (8)
  1. TRAVOPROST [Suspect]
     Active Substance: TRAVOPROST
     Indication: Glaucoma
     Dosage: ONE DROP IN EACH EYE EVERY NIGHT
     Route: 047
     Dates: start: 20210830
  2. UNSPECIFIED INGREDIENT [Concomitant]
     Active Substance: UNSPECIFIED INGREDIENT
  3. JAKAFI [Concomitant]
     Active Substance: RUXOLITINIB
  4. CAFFEINE [Concomitant]
     Active Substance: CAFFEINE
  5. POTASSIUM [Concomitant]
     Active Substance: POTASSIUM
  6. GABAPENTIN [Concomitant]
     Active Substance: GABAPENTIN
  7. TORSEMIDE [Concomitant]
     Active Substance: TORSEMIDE
  8. VITAMINS [Concomitant]
     Active Substance: VITAMINS

REACTIONS (3)
  - Product dose omission issue [Unknown]
  - Product container issue [Unknown]
  - Inadequate aseptic technique in use of product [Unknown]
